FAERS Safety Report 7480650-9 (Version None)
Quarter: 2011Q2

REPORT INFORMATION
  Report Type: 
  Country: None (occurrence: None)
  Receive Date: 20110516
  Receipt Date: 20110503
  Transmission Date: 20111010
  Serious: Yes (Hospitalization)
  Sender: FDA-Public Use
  Company Number: FR-JNJFOC-20110503334

PATIENT
  Sex: Female

DRUGS (12)
  1. HALDOL [Suspect]
     Indication: AGGRESSION
     Dosage: 6 GOUTTES ON EVENING AND 4 GOUTTES ON MORNING
     Route: 048
     Dates: end: 20091029
  2. COSOPT [Concomitant]
     Route: 047
  3. NEXIUM [Concomitant]
  4. TANAKAN [Concomitant]
  5. EQUANIL [Concomitant]
     Dates: start: 20091029
  6. ACETAMINOPHEN [Concomitant]
     Dosage: FOR 8 DAYS
  7. FORLAX [Concomitant]
     Indication: CONSTIPATION
  8. IMOVANE [Concomitant]
  9. LOVENOX [Concomitant]
  10. DILTIAZEM [Concomitant]
  11. LEXOMIL [Concomitant]
  12. ASPIRIN [Concomitant]

REACTIONS (9)
  - HUMERUS FRACTURE [None]
  - FATIGUE [None]
  - SOMNOLENCE [None]
  - HYDROCEPHALUS [None]
  - WALKING DISABILITY [None]
  - WEIGHT DECREASED [None]
  - BEDRIDDEN [None]
  - MEMORY IMPAIRMENT [None]
  - DEPENDENCE [None]
